FAERS Safety Report 9493812 (Version 1)
Quarter: 2013Q3

REPORT INFORMATION
  Report Type: Spontaneous
  Country: AU (occurrence: AU)
  Receive Date: 20130902
  Receipt Date: 20130902
  Transmission Date: 20140515
  Serious: Yes (Hospitalization)
  Sender: FDA-Public Use
  Company Number: AU-ROCHE-1268641

PATIENT
  Age: 40 Year
  Sex: Male

DRUGS (1)
  1. TAMIFLU [Suspect]
     Indication: PRODUCT USED FOR UNKNOWN INDICATION
     Route: 065
     Dates: start: 20130713

REACTIONS (3)
  - Rash erythematous [Recovered/Resolved]
  - Oedema mouth [Recovered/Resolved]
  - Eye swelling [Recovered/Resolved]
